FAERS Safety Report 14035402 (Version 1)
Quarter: 2017Q4

REPORT INFORMATION
  Report Type: Spontaneous
  Country: US (occurrence: US)
  Receive Date: 20171003
  Receipt Date: 20171003
  Transmission Date: 20180321
  Serious: Yes (Hospitalization, Other)
  Sender: FDA-Public Use
  Company Number: US-MYLANLABS-2017M1061609

PATIENT
  Sex: Female

DRUGS (3)
  1. ONFI [Suspect]
     Active Substance: CLOBAZAM
     Indication: NEUROMYOTONIA
     Dosage: 10 MG, BID
     Route: 048
  2. CLONAZEPAM. [Suspect]
     Active Substance: CLONAZEPAM
     Indication: PRODUCT USED FOR UNKNOWN INDICATION
     Dosage: UNK
  3. SABRIL [Suspect]
     Active Substance: VIGABATRIN
     Indication: NEUROMYOTONIA
     Dosage: 100 MG, BID

REACTIONS (2)
  - Blood ketone body increased [Unknown]
  - Seizure [Not Recovered/Not Resolved]
